FAERS Safety Report 13035859 (Version 8)
Quarter: 2022Q1

REPORT INFORMATION
  Report Type: Spontaneous
  Country: US (occurrence: US)
  Receive Date: 20161216
  Receipt Date: 20220201
  Transmission Date: 20220423
  Serious: Yes (Other)
  Sender: FDA-Public Use
  Company Number: US-PFIZER INC-2016582164

PATIENT
  Age: 86 Year
  Sex: Female
  Weight: 72 kg

DRUGS (18)
  1. LYRICA [Suspect]
     Active Substance: PREGABALIN
     Indication: Neuropathy peripheral
     Dosage: 100 MG (2 X 50MG CAPSULES), THRICE DAILY
     Route: 048
     Dates: start: 201604
  2. LYRICA [Suspect]
     Active Substance: PREGABALIN
     Indication: Muscle spasms
     Dosage: 50 MG, UNK
  3. LYRICA [Suspect]
     Active Substance: PREGABALIN
     Dosage: 100 MG, 3X/DAY (50MG 2 CAPSULE BY MOUTH 3 TIMES A DAY)
     Route: 048
  4. BENAZEPRIL [Concomitant]
     Active Substance: BENAZEPRIL HYDROCHLORIDE
     Indication: Hypertension
     Dosage: 10 MG, 2X/DAY
     Route: 048
  5. AMLODIPINE [Concomitant]
     Active Substance: AMLODIPINE BESYLATE
     Indication: Hypertension
     Dosage: 10 MG, 1X/DAY
     Route: 048
  6. OXYBUTYNIN [Concomitant]
     Active Substance: OXYBUTYNIN
     Indication: Urinary incontinence
     Dosage: 10 MG, 1X/DAY
     Route: 048
  7. LEVOTHYROXINE [Concomitant]
     Active Substance: LEVOTHYROXINE
     Indication: Thyroid disorder
     Dosage: 25 MG, 1X/DAY
     Route: 048
  8. LEVOTHYROXINE [Concomitant]
     Active Substance: LEVOTHYROXINE
     Dosage: 25 UG, UNK
  9. LEVOTHYROXINE [Concomitant]
     Active Substance: LEVOTHYROXINE
     Dosage: 25 UG, DAILY
     Route: 048
  10. SIMVASTATIN [Concomitant]
     Active Substance: SIMVASTATIN
     Indication: Blood cholesterol increased
     Dosage: 40 MG, 1X/DAY, AT BEDTIME
  11. SIMVASTATIN [Concomitant]
     Active Substance: SIMVASTATIN
     Dosage: 40 MG, DAILY
  12. ZOLPIDEM [Concomitant]
     Active Substance: ZOLPIDEM TARTRATE
     Indication: Sleep disorder
     Dosage: 10 MG, 1X/DAY, AT BEDTIME
     Route: 048
  13. AMLODIPINE BESYLATE [Concomitant]
     Active Substance: AMLODIPINE BESYLATE
     Dosage: 1 DF, DAILY
  14. POTASSIUM [Concomitant]
     Active Substance: POTASSIUM
     Dosage: 20 MEQ, DAILY
  15. FUROSEMIDE [Concomitant]
     Active Substance: FUROSEMIDE
     Dosage: 120 MG, DAILY
  16. SUPER B COMPL [Concomitant]
     Dosage: 2 DF, DAILY
  17. CAL MAG ZINC+D [Concomitant]
     Dosage: 2 DF, DAILY
  18. ATORVASTATIN [Concomitant]
     Active Substance: ATORVASTATIN
     Indication: Blood cholesterol abnormal
     Dosage: 40 MG, 1X/DAY, [40 MG, TABLET, 1 TABLET BY MOUTH EVERY DAY AT BED TIME]

REACTIONS (7)
  - Deafness [Not Recovered/Not Resolved]
  - Therapeutic product effect incomplete [Not Recovered/Not Resolved]
  - Product dose omission issue [Unknown]
  - Blood glucose increased [Unknown]
  - Weight increased [Not Recovered/Not Resolved]
  - Vision blurred [Not Recovered/Not Resolved]
  - Wound [Unknown]

NARRATIVE: CASE EVENT DATE: 20160101
